FAERS Safety Report 19205625 (Version 1)
Quarter: 2021Q2

REPORT INFORMATION
  Report Type: Spontaneous
  Country: US (occurrence: US)
  Receive Date: 20210503
  Receipt Date: 20210503
  Transmission Date: 20210717
  Serious: No
  Sender: FDA-Public Use
  Company Number: US-FARMAPROD-202101-0097

PATIENT
  Age: 68 Year
  Sex: Female

DRUGS (9)
  1. ASPIRIN. [Concomitant]
     Active Substance: ASPIRIN
  2. SYSTANE (HYPROMELLOSE 2910 (4000 MPA.S)) [Concomitant]
     Active Substance: HYPROMELLOSE 2910 (4000 MPA.S)
     Dosage: 0.3%?0.4%
  3. OXERVATE [Suspect]
     Active Substance: CENEGERMIN-BKBJ
     Indication: NEUROTROPHIC KERATOPATHY
     Route: 047
     Dates: start: 20210111
  4. FISH OIL [Concomitant]
     Active Substance: FISH OIL
  5. REFRESH OPTIVE MEGA [Concomitant]
  6. OXERVATE [Suspect]
     Active Substance: CENEGERMIN-BKBJ
     Indication: PUNCTATE KERATITIS
  7. TRAVOPROST. [Concomitant]
     Active Substance: TRAVOPROST
  8. RESTASIS [Concomitant]
     Active Substance: CYCLOSPORINE
  9. CALCIUM [Concomitant]
     Active Substance: CALCIUM

REACTIONS (2)
  - Eye irritation [Unknown]
  - Eye pain [Unknown]

NARRATIVE: CASE EVENT DATE: 20210114
